FAERS Safety Report 7521952-7 (Version None)
Quarter: 2011Q2

REPORT INFORMATION
  Report Type: 
  Country: None (occurrence: None)
  Receive Date: 20110603
  Receipt Date: 20110526
  Transmission Date: 20111010
  Serious: Yes (Death, Other)
  Sender: FDA-Public Use
  Company Number: NO-BRISTOL-MYERS SQUIBB COMPANY-15797285

PATIENT
  Age: 57 Year
  Sex: Female
  Weight: 107 kg

DRUGS (5)
  1. TEGRETOL [Concomitant]
     Route: 048
  2. GLUCOPHAGE [Suspect]
     Indication: DIABETES MELLITUS
     Route: 048
  3. ZOCOR [Concomitant]
     Route: 048
  4. ACTOS [Concomitant]
     Route: 048
  5. DIOVAN [Concomitant]
     Route: 048

REACTIONS (8)
  - COLD SWEAT [None]
  - CARDIAC ARREST [None]
  - METABOLIC ACIDOSIS [None]
  - DIARRHOEA [None]
  - SHOCK [None]
  - VOMITING [None]
  - DIZZINESS [None]
  - MALAISE [None]
